FAERS Safety Report 19157671 (Version 1)
Quarter: 2021Q2

REPORT INFORMATION
  Report Type: Spontaneous
  Country: DE (occurrence: DE)
  Receive Date: 20210420
  Receipt Date: 20210420
  Transmission Date: 20210717
  Serious: Yes (Other)
  Sender: FDA-Public Use
  Company Number: DE-DRREDDYS-GER/GER/21/0134424

PATIENT
  Age: 41 Year
  Sex: Male

DRUGS (8)
  1. MORPHINE [Suspect]
     Active Substance: MORPHINE
     Indication: PRODUCT USED FOR UNKNOWN INDICATION
  2. NORDAZEPAM [Suspect]
     Active Substance: NORDAZEPAM
     Indication: PRODUCT USED FOR UNKNOWN INDICATION
  3. BUPRENORPHINE. [Suspect]
     Active Substance: BUPRENORPHINE
     Indication: PRODUCT USED FOR UNKNOWN INDICATION
  4. CODEINE [Suspect]
     Active Substance: CODEINE
     Indication: PRODUCT USED FOR UNKNOWN INDICATION
  5. LORAZEPAM. [Suspect]
     Active Substance: LORAZEPAM
     Indication: PRODUCT USED FOR UNKNOWN INDICATION
  6. ALPHA?PYRROLIDINOPENTIOTHIOPHENONE [Suspect]
     Active Substance: .ALPHA.-PYRROLIDINOVALEROTHIOPHENONE
     Indication: PRODUCT USED FOR UNKNOWN INDICATION
  7. PREGABALIN. [Suspect]
     Active Substance: PREGABALIN
     Indication: PRODUCT USED FOR UNKNOWN INDICATION
  8. DIAZEPAM. [Suspect]
     Active Substance: DIAZEPAM
     Indication: PRODUCT USED FOR UNKNOWN INDICATION

REACTIONS (16)
  - Dysarthria [Unknown]
  - Drug abuse [Unknown]
  - Bradyphrenia [Unknown]
  - Confusional state [Unknown]
  - Bradykinesia [Unknown]
  - Emotional distress [Unknown]
  - Gait disturbance [Unknown]
  - Mood swings [Unknown]
  - Miosis [Unknown]
  - Amnesia [Unknown]
  - Disorientation [Unknown]
  - Psychotic behaviour [Unknown]
  - Delusion [Unknown]
  - Homicidal ideation [Unknown]
  - Somnolence [Unknown]
  - Impaired driving ability [Unknown]
